FAERS Safety Report 16135638 (Version 2)
Quarter: 2020Q2

REPORT INFORMATION
  Report Type: Spontaneous
  Country: US (occurrence: US)
  Receive Date: 20190329
  Receipt Date: 20200508
  Transmission Date: 20200713
  Serious: No
  Sender: FDA-Public Use
  Company Number: US-PFIZER INC-2019137166

PATIENT
  Age: 50 Year
  Sex: Female

DRUGS (4)
  1. PARAPLATIN [Concomitant]
     Active Substance: CARBOPLATIN
     Indication: CHEMOTHERAPY
     Dosage: 580 MG, UNK
  2. DOCETAXEL. [Suspect]
     Active Substance: DOCETAXEL
     Indication: BREAST CANCER FEMALE
     Dosage: 127 MG, CYCLIC (6 CYCLES, EVERY 3 WEEKS)
     Dates: start: 20130522, end: 20130904
  3. ESTROGEN [Concomitant]
     Active Substance: ESTROGENS
     Dosage: UNK
     Dates: start: 2008, end: 2013
  4. TAXOTERE [Suspect]
     Active Substance: DOCETAXEL
     Indication: BREAST CANCER FEMALE
     Dosage: 127 MG, CYCLIC (6 CYCLES, EVERY 3 WEEKS)
     Dates: start: 20130522, end: 20130904

REACTIONS (5)
  - Hair texture abnormal [Not Recovered/Not Resolved]
  - Hair disorder [Not Recovered/Not Resolved]
  - Madarosis [Not Recovered/Not Resolved]
  - Hair colour changes [Not Recovered/Not Resolved]
  - Alopecia [Not Recovered/Not Resolved]

NARRATIVE: CASE EVENT DATE: 20140303
